FAERS Safety Report 18329128 (Version 1)
Quarter: 2020Q3

REPORT INFORMATION
  Report Type: Spontaneous
  Country: US (occurrence: US)
  Receive Date: 20200929
  Receipt Date: 20200929
  Transmission Date: 20201103
  Serious: Yes (Hospitalization)
  Sender: FDA-Public Use
  Company Number: None

PATIENT
  Age: 61 Year
  Sex: Female

DRUGS (11)
  1. ACTEMRA ACTPEN [Suspect]
     Active Substance: TOCILIZUMAB
     Indication: RHEUMATOID ARTHRITIS
     Dosage: ?          OTHER DOSE:162 MG/0.9ML;?
     Route: 058
     Dates: start: 20200811, end: 20200814
  2. NEURONTIN [Concomitant]
     Active Substance: GABAPENTIN
  3. FOLIC ACID. [Concomitant]
     Active Substance: FOLIC ACID
  4. PANCREASE MT CAP [Concomitant]
  5. PAXIL [Concomitant]
     Active Substance: PAROXETINE HYDROCHLORIDE
  6. VIT D [Concomitant]
     Active Substance: VITAMIN D NOS
  7. PRILOSEC [Concomitant]
     Active Substance: OMEPRAZOLE MAGNESIUM
  8. VENELAFAXINE [Concomitant]
  9. NORCO [Concomitant]
     Active Substance: ACETAMINOPHEN\HYDROCODONE BITARTRATE
  10. METHOTREXATE. [Concomitant]
     Active Substance: METHOTREXATE
  11. LEVOTHYROXINE. [Concomitant]
     Active Substance: LEVOTHYROXINE

REACTIONS (1)
  - Breast conserving surgery [None]
